FAERS Safety Report 15886255 (Version 1)
Quarter: 2019Q1

REPORT INFORMATION
  Report Type: Spontaneous
  Country: US (occurrence: US)
  Receive Date: 20190129
  Receipt Date: 20190129
  Transmission Date: 20190417
  Serious: No
  Sender: FDA-Public Use
  Company Number: US-009507513-1901USA011049

PATIENT
  Age: 25 Year
  Sex: Female

DRUGS (1)
  1. INVANZ [Suspect]
     Active Substance: ERTAPENEM SODIUM
     Indication: LEMIERRE SYNDROME
     Dosage: 1 GRAM, Q12H

REACTIONS (1)
  - Drug ineffective [Unknown]
